FAERS Safety Report 23172372 (Version 1)
Quarter: 2023Q4

REPORT INFORMATION
  Report Type: Spontaneous
  Country: CN (occurrence: None)
  Receive Date: 20231110
  Receipt Date: 20231110
  Transmission Date: 20240110
  Serious: Yes (Other)
  Sender: FDA-Public Use
  Company Number: CN-ROCHE-3452705

PATIENT
  Age: 56 Year
  Sex: Female
  Weight: 60 kg

DRUGS (4)
  1. HERCEPTIN [Suspect]
     Active Substance: TRASTUZUMAB
     Indication: Breast cancer
     Route: 041
     Dates: start: 20230906, end: 20230906
  2. HERCEPTIN [Suspect]
     Active Substance: TRASTUZUMAB
     Route: 041
     Dates: start: 20230927, end: 20230927
  3. CARBOPLATIN [Suspect]
     Active Substance: CARBOPLATIN
     Indication: Breast cancer
     Dosage: THE DRUG WAS ADMINISTERED TWICE IN TOTAL, ONCE ON 06/SEP/2023 AND ONCE ON 27/SEP/2023
     Route: 041
     Dates: start: 20230906, end: 20230927
  4. DOCETAXEL [Suspect]
     Active Substance: DOCETAXEL\DOCETAXEL ANHYDROUS
     Indication: Breast cancer
     Dosage: THE DRUG WAS ADMINISTERED TWICE IN TOTAL, ONCE ON 06/SEP/2023 AND ONCE ON 27/SEP/2023
     Route: 041
     Dates: start: 20230906, end: 20230927

REACTIONS (1)
  - Hepatic function abnormal [Recovered/Resolved]

NARRATIVE: CASE EVENT DATE: 20230915
